FAERS Safety Report 6660777-1 (Version None)
Quarter: 2010Q1

REPORT INFORMATION
  Report Type: 
  Country: None (occurrence: None)
  Receive Date: 20100331
  Receipt Date: 20100323
  Transmission Date: 20100710
  Serious: Yes (Hospitalization)
  Sender: FDA-Public Use
  Company Number: FR-ROCHE-682666

PATIENT
  Age: 55 Year
  Sex: Female

DRUGS (5)
  1. PEG-INTERFERON A-2A (RO 25-8310) [Suspect]
     Route: 065
     Dates: start: 20070401, end: 20070709
  2. PEG-INTERFERON A-2A (RO 25-8310) [Suspect]
     Dosage: DOSE INCREASED
     Route: 065
     Dates: start: 20070709
  3. RIBAVIRIN [Suspect]
     Route: 065
     Dates: start: 20070401
  4. ARANESP [Suspect]
     Indication: ANAEMIA
     Route: 065
     Dates: start: 20070501
  5. VERAPAMIL [Concomitant]
     Dates: start: 19900101

REACTIONS (3)
  - CEREBRAL VASOCONSTRICTION [None]
  - HAEMOGLOBIN DECREASED [None]
  - SUBARACHNOID HAEMORRHAGE [None]
